FAERS Safety Report 10181149 (Version 1)
Quarter: 2014Q2

REPORT INFORMATION
  Report Type: Spontaneous
  Country: US (occurrence: US)
  Receive Date: 20140519
  Receipt Date: 20140519
  Transmission Date: 20141212
  Serious: No
  Sender: FDA-Public Use
  Company Number: US-AMGEN INC.-USASP2014027383

PATIENT
  Age: 69 Year
  Sex: Female

DRUGS (4)
  1. PROLIA [Suspect]
     Indication: OSTEOPENIA
     Dosage: UNK UNK, Q6MO
     Route: 065
     Dates: start: 20131007
  2. CALCIUM [Concomitant]
     Dosage: 1500 MG, UNK
  3. VITAMIN D                          /00107901/ [Concomitant]
     Dosage: 4000 UNIT, UNK
  4. BORON [Concomitant]
     Dosage: UNK

REACTIONS (1)
  - Road traffic accident [Unknown]
